FAERS Safety Report 9278563 (Version 4)
Quarter: 2013Q3

REPORT INFORMATION
  Report Type: Spontaneous
  Country: FR (occurrence: FR)
  Receive Date: 20130508
  Receipt Date: 20130705
  Transmission Date: 20140515
  Serious: Yes (Other)
  Sender: FDA-Public Use
  Company Number: PHHY2013FR045469

PATIENT
  Age: 62 Year
  Sex: Male
  Weight: 62 kg

DRUGS (8)
  1. GILENYA [Suspect]
     Indication: MULTIPLE SCLEROSIS
     Dosage: 0.5 MG, QD
     Route: 048
     Dates: start: 20120424
  2. MYOLASTAN [Concomitant]
     Indication: MUSCLE SPASTICITY
  3. NEURONTIN [Concomitant]
     Indication: PAIN
  4. ANAFRANIL [Concomitant]
  5. NUCTALON [Concomitant]
  6. THERALENE [Concomitant]
  7. PREVISCAN [Concomitant]
     Indication: PHLEBITIS
  8. SOLUMEDROL [Concomitant]
     Dates: start: 20120720, end: 20120722

REACTIONS (3)
  - B-cell lymphoma [Unknown]
  - Local swelling [Unknown]
  - Lymphadenopathy [Not Recovered/Not Resolved]
